FAERS Safety Report 8650210 (Version 5)
Quarter: 2012Q4

REPORT INFORMATION
  Report Type: 
  Country: US (occurrence: US)
  Receive Date: 20120705
  Receipt Date: 20121008
  Transmission Date: 20130627
  Serious: Yes (Other)
  Sender: FDA-Public Use
  Company Number: US-PFIZER INC-2012158661

PATIENT
  Age: 62 Year
  Sex: Male
  Weight: 67.57 kg

DRUGS (5)
  1. SUTENT [Suspect]
     Indication: HEPATIC CANCER METASTATIC
     Dosage: 12.5 mg, 3x/day (take one 12.5mg capsule three times a day for a total of 37.5mg / day)
     Dates: start: 20120618
  2. SUTENT [Suspect]
     Indication: BRONCHIAL CARCINOMA
     Dosage: 37.5 mg, daily
     Dates: start: 201206, end: 201208
  3. ANDROGEL [Concomitant]
     Indication: BLOOD TESTOSTERONE ABNORMAL
     Dosage: UNK
  4. ANDROGEL [Concomitant]
     Indication: MUSCULOSKELETAL DISORDER
  5. IBUPROFEN [Concomitant]
     Indication: HEPATIC PAIN
     Dosage: UNK

REACTIONS (32)
  - Off label use [Unknown]
  - Suicide attempt [Unknown]
  - Disease progression [Unknown]
  - Hepatic cancer [Unknown]
  - Bronchial carcinoma [Unknown]
  - White blood cell count decreased [Recovered/Resolved]
  - Dysstasia [Recovered/Resolved]
  - Hypoaesthesia [Recovered/Resolved]
  - Speech disorder [Recovered/Resolved]
  - Skin exfoliation [Unknown]
  - Pruritus [Unknown]
  - Gastric disorder [Recovered/Resolved]
  - Dysphagia [Recovered/Resolved]
  - Dysgeusia [Unknown]
  - Oral discomfort [Unknown]
  - Glossodynia [Unknown]
  - Tongue disorder [Unknown]
  - Tongue coated [Unknown]
  - Plicated tongue [Recovered/Resolved]
  - Hypersomnia [Recovered/Resolved]
  - Fatigue [Unknown]
  - Nausea [Recovered/Resolved]
  - Diarrhoea [Unknown]
  - Thinking abnormal [Recovered/Resolved]
  - Feeling abnormal [Recovered/Resolved]
  - Impaired driving ability [Unknown]
  - Drug screen false positive [Unknown]
  - Faeces discoloured [Unknown]
  - Hair growth abnormal [Unknown]
  - Nail growth abnormal [Unknown]
  - Nail disorder [Unknown]
  - Alopecia [Recovered/Resolved]
